FAERS Safety Report 7910336-5 (Version None)
Quarter: 2011Q4

REPORT INFORMATION
  Report Type: 
  Country: None (occurrence: None)
  Receive Date: 20111111
  Receipt Date: 20111107
  Transmission Date: 20120403
  Serious: Yes (Hospitalization)
  Sender: FDA-Public Use
  Company Number: US-JNJFOC-20111104108

PATIENT
  Sex: Female
  Weight: 89.5 kg

DRUGS (3)
  1. REMICADE [Suspect]
     Route: 042
     Dates: start: 20111031
  2. REMICADE [Suspect]
     Route: 042
     Dates: start: 20100820
  3. REMICADE [Suspect]
     Indication: INFLAMMATORY BOWEL DISEASE
     Route: 042
     Dates: start: 20110823

REACTIONS (1)
  - ABDOMINAL PAIN [None]
